FAERS Safety Report 17194780 (Version 2)
Quarter: 2020Q1

REPORT INFORMATION
  Report Type: Spontaneous
  Country: GB (occurrence: GB)
  Receive Date: 20191224
  Receipt Date: 20200116
  Transmission Date: 20200409
  Serious: Yes (Other)
  Sender: FDA-Public Use
  Company Number: GB-TEVA-2019-GB-1158363

PATIENT
  Sex: Male

DRUGS (1)
  1. SALBUTAMOL [Suspect]
     Active Substance: ALBUTEROL
     Dosage: INHALER; 100 MCG
     Route: 055

REACTIONS (2)
  - Choking [Unknown]
  - Foreign body in respiratory tract [Unknown]

NARRATIVE: CASE EVENT DATE: 20191220
